FAERS Safety Report 5236762-3 (Version None)
Quarter: 2007Q1

REPORT INFORMATION
  Report Type: 
  Country: None (occurrence: None)
  Receive Date: 20070213
  Receipt Date: 20070131
  Transmission Date: 20070707
  Serious: Yes (Hospitalization)
  Sender: FDA-Public Use
  Company Number: 2007AP00776

PATIENT
  Age: 72 Year
  Sex: Male

DRUGS (4)
  1. CRESTOR [Suspect]
     Indication: HYPERLIPIDAEMIA
     Route: 048
     Dates: start: 20061212, end: 20061225
  2. CRESTOR [Suspect]
     Route: 048
     Dates: start: 20070130
  3. CIBACEN [Concomitant]
     Route: 048
     Dates: end: 20061225
  4. ARICEPT [Concomitant]
     Route: 048

REACTIONS (3)
  - BRADYCARDIA [None]
  - PANCREATITIS ACUTE [None]
  - SHOCK [None]
